FAERS Safety Report 7704041-8 (Version None)
Quarter: 2011Q3

REPORT INFORMATION
  Report Type: 
  Country: None (occurrence: None)
  Receive Date: 20110823
  Receipt Date: 20110815
  Transmission Date: 20111222
  Serious: Yes (Hospitalization)
  Sender: FDA-Public Use
  Company Number: US-AMGEN-USASP2011041833

PATIENT
  Age: 83 Year
  Sex: Female
  Weight: 68.481 kg

DRUGS (6)
  1. DILTIAZEM [Concomitant]
     Indication: CARDIAC DISORDER
     Dosage: 100 MG, UNK
     Route: 048
  2. METOPROLOL [Concomitant]
     Indication: CARDIAC DISORDER
     Dosage: 50 MG, QD
     Route: 048
  3. FOLIC ACID [Concomitant]
     Indication: LYMPHOMA
     Dosage: 1 MG, QD
     Route: 048
     Dates: start: 19980101
  4. PROCRIT [Suspect]
     Indication: LYMPHOMA
     Dosage: UNK
  5. KLOR-CON [Concomitant]
     Indication: HYPOKALAEMIC SYNDROME
     Dosage: 1 MG, UNK
  6. FUROSEMIDE [Concomitant]
     Indication: FLUID RETENTION
     Dosage: 20 MG, UNK

REACTIONS (2)
  - HOSPITALISATION [None]
  - RASH GENERALISED [None]
